FAERS Safety Report 12779026 (Version 1)
Quarter: 2016Q3

REPORT INFORMATION
  Report Type: Spontaneous
  Country: US (occurrence: US)
  Receive Date: 20160921
  Receipt Date: 20160921
  Transmission Date: 20161109
  Serious: Yes (Hospitalization)
  Sender: FDA-Public Use
  Company Number: None

PATIENT
  Age: 61 Year
  Sex: Male
  Weight: 111.4 kg

DRUGS (2)
  1. FUROSEMIDE. [Suspect]
     Active Substance: FUROSEMIDE
     Indication: OEDEMA
     Route: 048
     Dates: start: 20120823, end: 20120906
  2. METOLAZONE. [Suspect]
     Active Substance: METOLAZONE
     Indication: OEDEMA
     Dosage: 5 MG AM PO
     Route: 048
     Dates: start: 20120710, end: 20160906

REACTIONS (4)
  - Hypotension [None]
  - Hypochloraemia [None]
  - Hypovolaemia [None]
  - Hyponatraemia [None]

NARRATIVE: CASE EVENT DATE: 20160906
